FAERS Safety Report 6584721-0 (Version None)
Quarter: 2010Q1

REPORT INFORMATION
  Report Type: 
  Country: None (occurrence: None)
  Receive Date: 20100217
  Receipt Date: 20100208
  Transmission Date: 20100710
  Serious: Yes (Hospitalization)
  Sender: FDA-Public Use
  Company Number: PHEH2010US02342

PATIENT
  Sex: Male

DRUGS (2)
  1. EXJADE [Suspect]
     Indication: LYMPHATIC DISORDER
     Dosage: 1500 MG, QD
     Route: 048
     Dates: start: 20100111
  2. REVLIMID [Concomitant]
     Dosage: UNK, UNK
     Route: 065

REACTIONS (1)
  - PNEUMONIA [None]
